FAERS Safety Report 8216602-0 (Version None)
Quarter: 2012Q1

REPORT INFORMATION
  Report Type: 
  Country: None (occurrence: None)
  Receive Date: 20120316
  Receipt Date: 20120302
  Transmission Date: 20120608
  Serious: Yes (Other)
  Sender: FDA-Public Use
  Company Number: CHPA2012US004477

PATIENT
  Sex: Female

DRUGS (1)
  1. EXCEDRIN (MIGRAINE) [Suspect]
     Dosage: 3-6 DF, QD
     Dates: start: 19870101

REACTIONS (2)
  - DRUG DEPENDENCE [None]
  - INCORRECT DOSE ADMINISTERED [None]
